FAERS Safety Report 9357873 (Version 1)
Quarter: 2013Q2

REPORT INFORMATION
  Report Type: Spontaneous
  Country: US (occurrence: US)
  Receive Date: 20130620
  Receipt Date: 20130620
  Transmission Date: 20140414
  Serious: No
  Sender: FDA-Public Use
  Company Number: US-GALDERMA-US13000079

PATIENT
  Age: 22 Year
  Sex: Female

DRUGS (4)
  1. DIFFERIN [Suspect]
     Indication: ACNE
     Route: 061
     Dates: start: 20130106, end: 20130106
  2. DIFFERIN [Suspect]
     Indication: ACNE
     Route: 061
     Dates: start: 2011, end: 2011
  3. CETAPHIL [Suspect]
     Indication: THERAPEUTIC SKIN CARE TOPICAL
     Route: 061
     Dates: start: 201211, end: 201211
  4. PONDS DRY SKIN CREAM [Concomitant]
     Indication: DRY SKIN PROPHYLAXIS
     Route: 061

REACTIONS (4)
  - Eyelid oedema [Recovering/Resolving]
  - Dysphagia [Recovered/Resolved]
  - Lip swelling [Recovering/Resolving]
  - Dry skin [Unknown]
